FAERS Safety Report 9521228 (Version 1)
Quarter: 2013Q3

REPORT INFORMATION
  Report Type: Spontaneous
  Country: JP (occurrence: None)
  Receive Date: 20130829
  Receipt Date: 20130829
  Transmission Date: 20140515
  Serious: Yes (Death)
  Sender: FDA-Public Use
  Company Number: 2013037635

PATIENT
  Age: 79 Year
  Sex: Male

DRUGS (3)
  1. SANGLOPOR [Suspect]
     Indication: TOXIC SHOCK SYNDROME STREPTOCOCCAL
  2. PENICILLIN G / 00000906 / (BENZYLPENICILLIN POTASSIUM) [Concomitant]
  3. CLINDAMYCIN (CLINDAMYCIN) [Concomitant]

REACTIONS (5)
  - Drug ineffective [None]
  - General physical health deterioration [None]
  - Continuous haemodiafiltration [None]
  - Necrotising fasciitis [None]
  - Renal necrosis [None]
